FAERS Safety Report 6071664-4 (Version None)
Quarter: 2009Q1

REPORT INFORMATION
  Report Type: 
  Country: None (occurrence: None)
  Receive Date: 20090206
  Receipt Date: 20090206
  Transmission Date: 20090719
  Serious: No
  Sender: FDA-Public Use
  Company Number: None

PATIENT
  Sex: Female
  Weight: 67.3 kg

DRUGS (2)
  1. FLUOROURACIL [Suspect]
     Dosage: 3600 MG
  2. LEUCOVORIN CALCIUM [Suspect]
     Dosage: 136 MG

REACTIONS (1)
  - NEUTROPHIL COUNT DECREASED [None]
